FAERS Safety Report 25353954 (Version 1)
Quarter: 2025Q2

REPORT INFORMATION
  Report Type: Spontaneous
  Country: JP (occurrence: JP)
  Receive Date: 20250523
  Receipt Date: 20250523
  Transmission Date: 20250717
  Serious: Yes (Other)
  Sender: PFIZER
  Company Number: JP-PFIZER INC-PV202500060147

PATIENT
  Age: 3 Year
  Sex: Female

DRUGS (10)
  1. METHYLPREDNISOLONE SODIUM SUCCINATE [Suspect]
     Active Substance: METHYLPREDNISOLONE SODIUM SUCCINATE
     Indication: Optic neuritis
     Dosage: 26 MG/KG, DAILY
  2. PREDNISOLONE [Suspect]
     Active Substance: PREDNISOLONE
     Indication: Optic neuritis
     Dosage: 14 MG, DAILY
     Route: 048
  3. PREDNISOLONE [Suspect]
     Active Substance: PREDNISOLONE
     Dosage: 10 MG, DAILY
     Route: 048
  4. PREDNISOLONE [Suspect]
     Active Substance: PREDNISOLONE
     Dosage: 8 MG, DAILY
     Route: 048
  5. PREDNISOLONE [Suspect]
     Active Substance: PREDNISOLONE
     Dosage: 5 MG, DAILY
     Route: 048
  6. PREDNISOLONE [Suspect]
     Active Substance: PREDNISOLONE
     Dosage: 5 MG, ALTERNATE DAY
     Route: 048
  7. PREDNISOLONE [Suspect]
     Active Substance: PREDNISOLONE
     Dosage: 25 MG, ALTERNATE DAY
     Route: 048
  8. AZITHROMYCIN [Concomitant]
     Active Substance: AZITHROMYCIN
     Indication: Cat scratch disease
     Dosage: 10 MG/KG, DAILY (ON THE FIRST DAY ONLY)
     Route: 048
  9. AZITHROMYCIN [Concomitant]
     Active Substance: AZITHROMYCIN
     Dosage: 5 MG/KG, DAILY (ON AND AFTER THE SECOND DAY)
     Route: 048
  10. RIFAMPIN [Concomitant]
     Active Substance: RIFAMPIN
     Indication: Cat scratch disease
     Dosage: 20 MG/KG, DAILY
     Route: 048

REACTIONS (4)
  - Renovascular hypertension [Recovering/Resolving]
  - Vascular stenosis [Recovering/Resolving]
  - Off label use [Unknown]
  - Drug effective for unapproved indication [Unknown]
